FAERS Safety Report 16444046 (Version 1)
Quarter: 2019Q2

REPORT INFORMATION
  Report Type: Spontaneous
  Country: US (occurrence: US)
  Receive Date: 20190618
  Receipt Date: 20190618
  Transmission Date: 20190711
  Serious: No
  Sender: FDA-Public Use
  Company Number: US-TEVA-2019-US-1062680

PATIENT
  Sex: Female

DRUGS (13)
  1. ATIVAN [Concomitant]
     Active Substance: LORAZEPAM
  2. BACLOFEN. [Concomitant]
     Active Substance: BACLOFEN
  3. GABAPENTIN. [Concomitant]
     Active Substance: GABAPENTIN
  4. VITAMIN C [Concomitant]
     Active Substance: ASCORBIC ACID
  5. LORATADINE. [Concomitant]
     Active Substance: LORATADINE
  6. BUPROPION. [Concomitant]
     Active Substance: BUPROPION
  7. COPAXONE [Suspect]
     Active Substance: GLATIRAMER ACETATE
     Indication: MULTIPLE SCLEROSIS
     Route: 058
     Dates: start: 20170218
  8. BENADRYL [Concomitant]
     Active Substance: DIPHENHYDRAMINE HYDROCHLORIDE
  9. JUNEL FE 1/20 [Concomitant]
     Active Substance: ETHINYL ESTRADIOL\NORETHINDRONE ACETATE
  10. VITAMIN D [Concomitant]
     Active Substance: VITAMIN D NOS
  11. MULTIVITAMIN [Concomitant]
     Active Substance: VITAMINS
  12. NUVIGIL [Concomitant]
     Active Substance: ARMODAFINIL
  13. VITAMIN B12 [Concomitant]
     Active Substance: CYANOCOBALAMIN

REACTIONS (2)
  - Maternal exposure during pregnancy [Unknown]
  - Injection site reaction [Not Recovered/Not Resolved]
